FAERS Safety Report 6453450-6 (Version None)
Quarter: 2009Q4

REPORT INFORMATION
  Report Type: 
  Country: None (occurrence: None)
  Receive Date: 20091124
  Receipt Date: 20091112
  Transmission Date: 20100525
  Serious: Yes (Life-Threatening)
  Sender: FDA-Public Use
  Company Number: JP-ROCHE-665754

PATIENT
  Age: 54 Year
  Sex: Male

DRUGS (3)
  1. CELLCEPT [Suspect]
     Route: 048
  2. MEDROL [Concomitant]
     Route: 048
  3. TACROLIMUS HYDRATE [Concomitant]
     Route: 065

REACTIONS (1)
  - OESOPHAGEAL RUPTURE [None]
